FAERS Safety Report 11072097 (Version 3)
Quarter: 2015Q2

REPORT INFORMATION
  Report Type: Spontaneous
  Country: FR (occurrence: FR)
  Receive Date: 20150428
  Receipt Date: 20150611
  Transmission Date: 20150821
  Serious: Yes (Hospitalization)
  Sender: FDA-Public Use
  Company Number: FR-DSJP-DSE-2015-113435

PATIENT

DRUGS (3)
  1. HAVLANE [Concomitant]
     Active Substance: LOPRAZOLAM
     Indication: INSOMNIA
     Dosage: 1 MG, QD
     Route: 048
     Dates: start: 20130415
  2. ALTEIS 40 MG [Suspect]
     Active Substance: OLMESARTAN MEDOXOMIL
     Indication: HYPERTENSION
     Dosage: 40 MG, QD
     Route: 048
     Dates: start: 20130415, end: 20150318
  3. CYCLO 3                            /00801901/ [Concomitant]
     Indication: PRODUCT USED FOR UNKNOWN INDICATION
     Dosage: UNK
     Route: 048
     Dates: start: 2015

REACTIONS (7)
  - Vomiting [Recovered/Resolved]
  - Dehydration [Recovered/Resolved]
  - Colitis [Unknown]
  - Abdominal pain upper [Unknown]
  - Diarrhoea [Recovered/Resolved]
  - Hypokalaemia [Recovered/Resolved]
  - Duodenitis [Unknown]

NARRATIVE: CASE EVENT DATE: 20150212
